FAERS Safety Report 4648312-0 (Version None)
Quarter: 2005Q2

REPORT INFORMATION
  Report Type: 
  Country: None (occurrence: None)
  Receive Date: 20050427
  Receipt Date: 20050419
  Transmission Date: 20051028
  Serious: Yes (Hospitalization, Other)
  Sender: FDA-Public Use
  Company Number: 2005-04-1406

PATIENT
  Age: 54 Year
  Sex: Male

DRUGS (2)
  1. PEG-INTRON [Suspect]
     Indication: HEPATITIS C
     Dosage: 100 MCG QW SUBCUTANEOUS
     Route: 058
     Dates: start: 20050322, end: 20050404
  2. REBETOL [Suspect]
     Indication: HEPATITIS C
     Dosage: 200 MG TIW ORAL
     Route: 048
     Dates: start: 20050322, end: 20050404

REACTIONS (2)
  - BACK PAIN [None]
  - BLOOD PRESSURE DECREASED [None]
